FAERS Safety Report 16123976 (Version 1)
Quarter: 2019Q1

REPORT INFORMATION
  Report Type: Spontaneous
  Country: FR (occurrence: FR)
  Receive Date: 20190327
  Receipt Date: 20190327
  Transmission Date: 20190418
  Serious: Yes (Hospitalization)
  Sender: FDA-Public Use
  Company Number: FR-ASTRAZENECA-2019SE44663

PATIENT
  Age: 85 Year
  Sex: Female
  Weight: 98 kg

DRUGS (15)
  1. FORTZAAR [Suspect]
     Active Substance: HYDROCHLOROTHIAZIDE\LOSARTAN POTASSIUM
     Indication: ESSENTIAL HYPERTENSION
     Route: 048
  2. CODOLIPRANE [Suspect]
     Active Substance: ACETAMINOPHEN\CODEINE PHOSPHATE
     Route: 048
     Dates: start: 20070126, end: 20070201
  3. NOVONORM [Concomitant]
     Active Substance: REPAGLINIDE
     Route: 048
  4. LOXEN [Concomitant]
     Route: 048
     Dates: end: 20070201
  5. OMEPRAZOLE. [Suspect]
     Active Substance: OMEPRAZOLE
     Route: 048
  6. MOXONIDINE [Concomitant]
     Active Substance: MOXONIDINE
     Route: 048
     Dates: end: 20070201
  7. DAFALGAN [Concomitant]
     Active Substance: ACETAMINOPHEN
     Route: 048
  8. EUPRESSYL [Suspect]
     Active Substance: URAPIDIL
     Indication: ESSENTIAL HYPERTENSION
     Route: 048
  9. HUMALOG [Concomitant]
     Active Substance: INSULIN LISPRO
     Dosage: DAILY DOSE 16 IU
     Route: 058
  10. NAFTILUX [Concomitant]
     Active Substance: NAFRONYL OXALATE
     Route: 048
     Dates: end: 20070201
  11. UMULINE [Concomitant]
     Active Substance: INSULIN HUMAN
     Route: 058
  12. ASPEGIC (ACETYLSALICYLATE LYSINE, GLYCINE) [Concomitant]
     Active Substance: ASPIRIN DL-LYSINE\GLYCINE
     Route: 048
  13. TEMESTA (LORAZEPAM) [Suspect]
     Active Substance: LORAZEPAM
     Route: 048
     Dates: end: 20070201
  14. MIRTAZAPINE. [Concomitant]
     Active Substance: MIRTAZAPINE
     Route: 048
     Dates: end: 20070201
  15. NEURONTIN [Suspect]
     Active Substance: GABAPENTIN
     Dosage: 600.0MG UNKNOWN
     Route: 048

REACTIONS (2)
  - Fall [Recovering/Resolving]
  - Confusional state [Recovering/Resolving]

NARRATIVE: CASE EVENT DATE: 20070201
